FAERS Safety Report 4620288-1 (Version None)
Quarter: 2005Q1

REPORT INFORMATION
  Report Type: 
  Country: None (occurrence: None)
  Receive Date: 20050324
  Receipt Date: 20050309
  Transmission Date: 20050727
  Serious: Yes (Hospitalization, Other)
  Sender: FDA-Public Use
  Company Number: 430006M05USA

PATIENT
  Age: 37 Year
  Sex: Female

DRUGS (2)
  1. NOVANTRONE [Suspect]
     Indication: MULTIPLE SCLEROSIS
     Dosage: 1 IN 1 MONTHS,  INTRAVENOUS (NOT OTHERWISE SPECIFIED)
     Route: 042
     Dates: start: 20030101, end: 20030401
  2. TYLENOL [Concomitant]

REACTIONS (13)
  - ABDOMINAL PAIN [None]
  - ABDOMINAL PAIN UPPER [None]
  - ACUTE PROMYELOCYTIC LEUKAEMIA [None]
  - ASTHENIA [None]
  - CHILLS [None]
  - COAGULOPATHY [None]
  - CONSTIPATION [None]
  - DIZZINESS [None]
  - OEDEMA PERIPHERAL [None]
  - PNEUMONIA ASPIRATION [None]
  - RASH [None]
  - RECTAL HAEMORRHAGE [None]
  - VISUAL ACUITY REDUCED [None]
